FAERS Safety Report 4600674-6 (Version None)
Quarter: 2005Q1

REPORT INFORMATION
  Report Type: 
  Country: None (occurrence: None)
  Receive Date: 20050304
  Receipt Date: 20050225
  Transmission Date: 20050727
  Serious: Yes (Life-Threatening, Hospitalization)
  Sender: FDA-Public Use
  Company Number: 2005-02-1722

PATIENT
  Sex: Female

DRUGS (2)
  1. PEG-INTRON [Suspect]
     Dosage: UNKNOWN
     Route: 065
     Dates: start: 20041101, end: 20050201
  2. RIBAVIRIN [Suspect]
     Dosage: UNKNOWN
     Route: 065
     Dates: start: 20041101

REACTIONS (1)
  - DIABETIC COMA [None]
